FAERS Safety Report 19284721 (Version 3)
Quarter: 2021Q3

REPORT INFORMATION
  Report Type: Spontaneous
  Country: AR (occurrence: AR)
  Receive Date: 20210521
  Receipt Date: 20210805
  Transmission Date: 20211014
  Serious: Yes (Other)
  Sender: FDA-Public Use
  Company Number: AR-GLAXOSMITHKLINE-AR2021AMR088559

PATIENT
  Age: 52 Year
  Sex: Female

DRUGS (2)
  1. BENLYSTA [Suspect]
     Active Substance: BELIMUMAB
     Indication: SYSTEMIC LUPUS ERYTHEMATOSUS
     Dosage: UNK
     Route: 042
     Dates: start: 20160901
  2. BENLYSTA [Suspect]
     Active Substance: BELIMUMAB
     Dosage: UNK
     Route: 058
     Dates: start: 20210720

REACTIONS (10)
  - Myalgia [Unknown]
  - Head injury [Not Recovered/Not Resolved]
  - Haematoma [Not Recovered/Not Resolved]
  - Intracranial haematoma [Not Recovered/Not Resolved]
  - Fatigue [Recovered/Resolved]
  - Aggression [Not Recovered/Not Resolved]
  - Fall [Not Recovered/Not Resolved]
  - Syncope [Not Recovered/Not Resolved]
  - Nasopharyngitis [Not Recovered/Not Resolved]
  - Urinary tract infection [Not Recovered/Not Resolved]

NARRATIVE: CASE EVENT DATE: 201609
